FAERS Safety Report 24461007 (Version 1)
Quarter: 2024Q4

REPORT INFORMATION
  Report Type: Report from Study
  Country: US (occurrence: US)
  Receive Date: 20241018
  Receipt Date: 20241018
  Transmission Date: 20250115
  Serious: No
  Sender: ROCHE
  Company Number: US-ROCHE-3574437

PATIENT
  Age: 41 Year
  Sex: Female

DRUGS (28)
  1. RITUXAN [Suspect]
     Active Substance: RITUXIMAB
     Indication: Myositis
     Route: 041
  2. LANSOPRAZOLE [Concomitant]
     Active Substance: LANSOPRAZOLE
  3. OMEPRAZOLE [Concomitant]
     Active Substance: OMEPRAZOLE
  4. ONDANSETRON [Concomitant]
     Active Substance: ONDANSETRON
  5. OXYCODONE [Concomitant]
     Active Substance: OXYCODONE
     Route: 048
  6. RIZATRIPTAN [Concomitant]
     Active Substance: RIZATRIPTAN
     Indication: Migraine
     Route: 048
  7. ERENUMAB-AOOE [Concomitant]
     Active Substance: ERENUMAB-AOOE
  8. SPIRONOLACTONE [Concomitant]
     Active Substance: SPIRONOLACTONE
     Route: 048
  9. TORSEMIDE [Concomitant]
     Active Substance: TORSEMIDE
  10. VITAMIN D3 [Concomitant]
     Active Substance: CHOLECALCIFEROL
  11. ACETAMINOPHEN [Concomitant]
     Active Substance: ACETAMINOPHEN
  12. ALBUTEROL SULFATE [Concomitant]
     Active Substance: ALBUTEROL SULFATE
  13. BENZONATATE [Concomitant]
     Active Substance: BENZONATATE
  14. CALCIUM CARBONATE [Concomitant]
     Active Substance: CALCIUM CARBONATE
  15. CETIRIZINE HYDROCHLORIDE [Concomitant]
     Active Substance: CETIRIZINE HYDROCHLORIDE
  16. DICLOFENAC [Concomitant]
     Active Substance: DICLOFENAC
  17. HYDROCORTISONE [Concomitant]
     Active Substance: HYDROCORTISONE
  18. EMPAGLIFLOZIN [Concomitant]
     Active Substance: EMPAGLIFLOZIN
  19. ENTRESTO [Concomitant]
     Active Substance: SACUBITRIL\VALSARTAN
  20. ETONOGESTREL [Concomitant]
     Active Substance: ETONOGESTREL
  21. FLUOXETINE [Concomitant]
     Active Substance: FLUOXETINE HYDROCHLORIDE
  22. FOLIC ACID [Concomitant]
     Active Substance: FOLIC ACID
  23. MELOXICAM [Concomitant]
     Active Substance: MELOXICAM
  24. IBUPROFEN [Concomitant]
     Active Substance: IBUPROFEN
  25. LIDOCAINE [Concomitant]
     Active Substance: LIDOCAINE
  26. METFORMIN [Concomitant]
     Active Substance: METFORMIN HYDROCHLORIDE
  27. METHOTREXATE [Concomitant]
     Active Substance: METHOTREXATE
  28. METOPROLOL SUCCINATE [Concomitant]
     Active Substance: METOPROLOL SUCCINATE

REACTIONS (2)
  - Off label use [Unknown]
  - No adverse event [Unknown]
